FAERS Safety Report 9681791 (Version 1)
Quarter: 2013Q4

REPORT INFORMATION
  Report Type: Spontaneous
  Country: BR (occurrence: BR)
  Receive Date: 20131111
  Receipt Date: 20131111
  Transmission Date: 20140711
  Serious: Yes (Other)
  Sender: FDA-Public Use
  Company Number: BR-PFIZER INC-2013319172

PATIENT
  Age: 85 Year
  Sex: Female

DRUGS (3)
  1. DETRUSITOL LA [Suspect]
     Dosage: 4 MG, UNK
  2. SELOZOK [Concomitant]
     Indication: BLOOD PRESSURE ABNORMAL
     Dosage: UNK
  3. OXCARBAZEPINE [Concomitant]
     Indication: CONVULSION
     Dosage: UNK

REACTIONS (1)
  - Road traffic accident [Unknown]
